FAERS Safety Report 19595770 (Version 1)
Quarter: 2021Q3

REPORT INFORMATION
  Report Type: Report from Study
  Country: US (occurrence: US)
  Receive Date: 20210722
  Receipt Date: 20210722
  Transmission Date: 20211014
  Serious: Yes (Hospitalization)
  Sender: FDA-Public Use
  Company Number: US-BAYER-2021-176817

PATIENT
  Age: 69 Year
  Sex: Female
  Weight: 98.87 kg

DRUGS (5)
  1. ADEMPAS [Suspect]
     Active Substance: RIOCIGUAT
     Indication: PULMONARY ARTERIAL HYPERTENSION
     Dosage: 2.5 MG, TID
     Route: 048
  2. UPTRAVI [Concomitant]
     Active Substance: SELEXIPAG
     Dosage: UNK
  3. OPSUMIT [Concomitant]
     Active Substance: MACITENTAN
  4. XARELTO [Concomitant]
     Active Substance: RIVAROXABAN
     Dosage: UNK
  5. ADEMPAS [Suspect]
     Active Substance: RIOCIGUAT
     Indication: PULMONARY ARTERIAL HYPERTENSION
     Dosage: UNK
     Route: 048
     Dates: start: 20210219

REACTIONS (6)
  - Heart rate decreased [None]
  - Fall [None]
  - Head injury [None]
  - Dizziness [None]
  - Chest pain [None]
  - Hypotension [None]

NARRATIVE: CASE EVENT DATE: 20210616
